FAERS Safety Report 7524075-6 (Version None)
Quarter: 2011Q2

REPORT INFORMATION
  Report Type: 
  Country: None (occurrence: None)
  Receive Date: 20110606
  Receipt Date: 20110525
  Transmission Date: 20111010
  Serious: Yes (Hospitalization, Other)
  Sender: FDA-Public Use
  Company Number: FR-AMGEN-FRASP2011027951

PATIENT
  Age: 46 Year
  Sex: Female

DRUGS (4)
  1. ENBREL [Suspect]
     Indication: RHEUMATOID ARTHRITIS
     Dosage: 50 MG EVERY 5 DAYS
     Route: 058
     Dates: start: 20080201
  2. ACETAMINOPHEN [Concomitant]
     Dosage: UNK
  3. TOPALGIC                           /00599202/ [Concomitant]
     Dosage: UNK
  4. LEVOTHYROXINE SODIUM [Concomitant]
     Dosage: UNK

REACTIONS (3)
  - STAPHYLOCOCCAL INFECTION [None]
  - ANGINA PECTORIS [None]
  - PYELONEPHRITIS [None]
